FAERS Safety Report 8465300 (Version 2)
Quarter: 2013Q3

REPORT INFORMATION
  Report Type: Spontaneous
  Country: US (occurrence: US)
  Receive Date: 20120319
  Receipt Date: 20130725
  Transmission Date: 20140515
  Serious: Yes (Other)
  Sender: FDA-Public Use
  Company Number: US-PFIZER INC-2012067233

PATIENT
  Age: 38 Year
  Sex: Female

DRUGS (12)
  1. DILANTIN [Suspect]
     Indication: CONVULSION PROPHYLAXIS
     Dosage: 100 MG, 3X/DAY (EVERY 8 HOURS)
     Route: 048
     Dates: start: 20080408, end: 20080413
  2. MAGNEVIST [Concomitant]
     Dosage: 15 ML, UNK
     Route: 042
     Dates: start: 20080408
  3. CEREBYX [Concomitant]
     Dosage: 100 MG, 3X/DAY (EVERY 8 HOURS)
     Route: 042
     Dates: start: 20080408
  4. PROTONIX [Concomitant]
     Dosage: 40 MG, UNK
     Route: 042
     Dates: start: 20080408
  5. FENTANYL [Concomitant]
     Dosage: 25-50 MCG AS NEEDED
     Route: 042
     Dates: start: 20080408, end: 20080409
  6. CEFAZOLIN [Concomitant]
     Dosage: 1 G, 4X/DAY (EVERY 6 HOURS)
     Route: 042
     Dates: start: 20080408, end: 20080411
  7. AMBIEN [Concomitant]
     Dosage: 5 MG, 1X/DAY AT BED TIME
     Route: 048
     Dates: start: 20080409
  8. PROTONIX [Concomitant]
     Dosage: 40 MG, DAILY
     Route: 048
     Dates: start: 20080409, end: 20080413
  9. PERCOCET [Concomitant]
     Dosage: EVERY 4 HOURS AS NEEDED
     Route: 048
     Dates: start: 20080409, end: 20080413
  10. DECADRON [Concomitant]
     Dosage: 4 MG, 2X/DAY
     Route: 048
     Dates: start: 20080409, end: 20080411
  11. SURFAK STOOL SOFTENER [Concomitant]
     Dosage: 240 MG, DAILY AS NEEDED
     Route: 048
     Dates: start: 20080410
  12. KEFLEX [Concomitant]
     Dosage: 500 MG, 4X/DAY (EVERY 6 HOURS)
     Route: 048
     Dates: start: 20080411, end: 20080413

REACTIONS (1)
  - Stevens-Johnson syndrome [Unknown]
